FAERS Safety Report 7933913-4 (Version None)
Quarter: 2011Q4

REPORT INFORMATION
  Report Type: 
  Country: None (occurrence: None)
  Receive Date: 20111122
  Receipt Date: 20111107
  Transmission Date: 20120403
  Serious: Yes (Life-Threatening, Hospitalization)
  Sender: FDA-Public Use
  Company Number: US-ROCHE-1014904

PATIENT
  Sex: Female

DRUGS (6)
  1. HERCEPTIN [Suspect]
     Indication: BREAST CANCER
     Dosage: MAINTAENANCE DOSE
     Route: 042
     Dates: start: 20011126
  2. DOXORUBICIN HCL [Suspect]
     Indication: BREAST CANCER
     Route: 042
  3. DOCETAXEL [Suspect]
     Route: 042
  4. PYRIDOXINE HYDROCHLORIDE [Suspect]
     Indication: BREAST CANCER
     Route: 048
  5. DOCETAXEL [Suspect]
     Indication: BREAST CANCER
     Route: 042
  6. HERCEPTIN [Suspect]
     Route: 042

REACTIONS (1)
  - PERICARDIAL EFFUSION [None]
